FAERS Safety Report 10211721 (Version 1)
Quarter: 2014Q2

REPORT INFORMATION
  Report Type: Spontaneous
  Country: DK (occurrence: DE)
  Receive Date: 20140602
  Receipt Date: 20140602
  Transmission Date: 20141212
  Serious: Yes (Congenital Anomaly)
  Sender: FDA-Public Use
  Company Number: DE-FRI-1000067838

PATIENT
  Age: 0 Year
  Sex: Female

DRUGS (6)
  1. ESCITALOPRAM [Suspect]
     Dosage: 10-15 MG
     Route: 064
     Dates: start: 20120212, end: 20121117
  2. IBUPROFEN [Concomitant]
     Dosage: 800 MG, IF REQUIRED
     Route: 064
  3. MERONEM [Concomitant]
  4. FOLIC ACID [Concomitant]
     Indication: PROPHYLAXIS OF NEURAL TUBE DEFECT
     Route: 064
  5. DOPEGYT [Concomitant]
  6. ANAESTHETICS [Concomitant]
     Route: 064

REACTIONS (5)
  - Arachnoid cyst [Recovered/Resolved with Sequelae]
  - Cerebellar hypoplasia [Recovered/Resolved with Sequelae]
  - VIth nerve disorder [Recovered/Resolved with Sequelae]
  - Subdural hygroma [Recovered/Resolved with Sequelae]
  - Foetal exposure during pregnancy [Recovered/Resolved with Sequelae]
